FAERS Safety Report 4736971-3 (Version None)
Quarter: 2005Q3

REPORT INFORMATION
  Report Type: 
  Country: None (occurrence: None)
  Receive Date: 20050808
  Receipt Date: 20050728
  Transmission Date: 20060218
  Serious: Yes (Other)
  Sender: FDA-Public Use
  Company Number: US-ROCHE-412529

PATIENT
  Age: 58 Year
  Sex: Female
  Weight: 64.9 kg

DRUGS (1)
  1. CELLCEPT [Suspect]
     Route: 048
     Dates: start: 19970615, end: 20050615

REACTIONS (1)
  - FEMALE GENITAL-DIGESTIVE TRACT FISTULA [None]
